FAERS Safety Report 6415445-8 (Version None)
Quarter: 2009Q4

REPORT INFORMATION
  Report Type: 
  Country: None (occurrence: None)
  Receive Date: 20091022
  Receipt Date: 20091013
  Transmission Date: 20100525
  Serious: Yes (Other)
  Sender: FDA-Public Use
  Company Number: 8053396

PATIENT
  Age: 27 Year
  Sex: Female

DRUGS (3)
  1. KEPPRA [Suspect]
     Indication: EPILEPSY
     Dosage: 500 MG 2/D PO
     Route: 048
     Dates: start: 20090319
  2. CLONAZEPAM [Concomitant]
  3. LAMICTAL [Concomitant]

REACTIONS (1)
  - MENORRHAGIA [None]
